FAERS Safety Report 23543819 (Version 1)
Quarter: 2024Q1

REPORT INFORMATION
  Report Type: Spontaneous
  Country: US (occurrence: US)
  Receive Date: 20240220
  Receipt Date: 20240220
  Transmission Date: 20240410
  Serious: No
  Sender: FDA-Public Use
  Company Number: US-ASTELLAS-2024US002709

PATIENT
  Sex: Female

DRUGS (2)
  1. VEOZAH [Suspect]
     Active Substance: FEZOLINETANT
     Indication: Menopausal symptoms
     Route: 048
     Dates: start: 2023
  2. VEOZAH [Suspect]
     Active Substance: FEZOLINETANT
     Indication: Night sweats

REACTIONS (3)
  - Abdominal discomfort [Unknown]
  - Nausea [Unknown]
  - Drug ineffective [Unknown]

NARRATIVE: CASE EVENT DATE: 20230101
